FAERS Safety Report 9797088 (Version 2)
Quarter: 2014Q1

REPORT INFORMATION
  Report Type: Report from Study
  Country: CA (occurrence: CA)
  Receive Date: 20140105
  Receipt Date: 20140105
  Transmission Date: 20141002
  Serious: Yes (Death)
  Sender: FDA-Public Use
  Company Number: CA-ROCHE-1308782

PATIENT
  Age: 40 Year
  Sex: Female
  Weight: 54.4 kg

DRUGS (9)
  1. AVASTIN [Suspect]
     Indication: OLIGODENDROGLIOMA
     Route: 042
     Dates: start: 20130730, end: 20131112
  2. AVASTIN [Suspect]
     Route: 042
     Dates: start: 20131112
  3. AVASTIN [Suspect]
     Route: 042
     Dates: start: 20131127, end: 20131211
  4. AVASTIN [Suspect]
     Route: 042
     Dates: start: 20130730, end: 20131211
  5. KEPPRA [Concomitant]
  6. FERROUS GLUCONATE [Concomitant]
  7. DEXAMETHASONE [Concomitant]
  8. OMEGA 3 [Concomitant]
  9. VITAMIN E [Concomitant]

REACTIONS (5)
  - Death [Fatal]
  - Weight increased [Unknown]
  - Disease progression [Unknown]
  - Drug ineffective [Unknown]
  - Asthenia [Unknown]
